FAERS Safety Report 10217801 (Version 1)
Quarter: 2014Q2

REPORT INFORMATION
  Report Type: Spontaneous
  Country: SE (occurrence: SE)
  Receive Date: 20140604
  Receipt Date: 20140604
  Transmission Date: 20141212
  Serious: Yes (Hospitalization)
  Sender: FDA-Public Use
  Company Number: PHHY2014SE066364

PATIENT
  Age: 83 Year
  Sex: Female

DRUGS (5)
  1. TRILEPTAL [Suspect]
     Dosage: UNK UKN, UNK
     Dates: end: 201404
  2. HYDROCHLOROTHIAZIDE [Suspect]
     Dosage: UNK UKN, UNK
     Dates: end: 201404
  3. AMLODIPINE [Suspect]
     Dosage: UNK UKN, UNK
     Dates: end: 201404
  4. RAMIPRIL [Suspect]
     Dosage: UNK UKN, UNK
  5. TROMBYL [Concomitant]
     Dosage: UNK UKN, UNK

REACTIONS (2)
  - Hyponatraemia [Unknown]
  - Orthostatic hypotension [Unknown]
